FAERS Safety Report 17528925 (Version 1)
Quarter: 2020Q1

REPORT INFORMATION
  Report Type: Spontaneous
  Country: TH (occurrence: TH)
  Receive Date: 20200312
  Receipt Date: 20200312
  Transmission Date: 20200409
  Serious: Yes (Other)
  Sender: FDA-Public Use
  Company Number: TH-ROCHE-2559621

PATIENT
  Sex: Female

DRUGS (17)
  1. METHOTREXATE. [Suspect]
     Active Substance: METHOTREXATE
     Indication: DIFFUSE LARGE B-CELL LYMPHOMA
     Route: 065
     Dates: start: 20190612
  2. IFOSFAMIDE. [Suspect]
     Active Substance: IFOSFAMIDE
     Indication: DIFFUSE LARGE B-CELL LYMPHOMA
     Dosage: PART OF ICE1
     Route: 065
     Dates: start: 20190412
  3. CYCLOPHOSPHAMIDE. [Suspect]
     Active Substance: CYCLOPHOSPHAMIDE
     Indication: DIFFUSE LARGE B-CELL LYMPHOMA
     Dosage: PART OF R-CHOP1
     Route: 065
     Dates: start: 20180612, end: 20180620
  4. ETOPOSIDE. [Suspect]
     Active Substance: ETOPOSIDE
     Dosage: PART OF R-ICE X 6 CYCLES
     Route: 065
     Dates: start: 201910
  5. DOXORUBICIN [Suspect]
     Active Substance: DOXORUBICIN
     Dosage: PART OF CHOP X 6 CYCLES
     Route: 065
  6. CYCLOPHOSPHAMIDE. [Suspect]
     Active Substance: CYCLOPHOSPHAMIDE
     Dosage: PART OF CVP
     Route: 065
     Dates: start: 20191223
  7. CARBOPLATIN. [Suspect]
     Active Substance: CARBOPLATIN
     Indication: DIFFUSE LARGE B-CELL LYMPHOMA
     Dosage: PART OF ICE1
     Route: 065
     Dates: start: 20190412
  8. CARBOPLATIN. [Suspect]
     Active Substance: CARBOPLATIN
     Dosage: PART OF R-ICE X 6 CYCLES
     Route: 065
     Dates: end: 201910
  9. PREDNISOLONE. [Suspect]
     Active Substance: PREDNISOLONE
     Indication: DIFFUSE LARGE B-CELL LYMPHOMA
     Dosage: PART OF R-CHOP1
     Route: 065
     Dates: start: 20180612, end: 20180620
  10. ETOPOSIDE. [Suspect]
     Active Substance: ETOPOSIDE
     Indication: DIFFUSE LARGE B-CELL LYMPHOMA
     Dosage: PART OF ICE1
     Route: 065
     Dates: start: 20190412
  11. MABTHERA [Suspect]
     Active Substance: RITUXIMAB
     Indication: DIFFUSE LARGE B-CELL LYMPHOMA
     Dosage: PART OF R-CHOP1
     Route: 065
     Dates: start: 20180612, end: 20180620
  12. MABTHERA [Suspect]
     Active Substance: RITUXIMAB
     Dosage: PART OF R-ICE X 6 CYCLES
     Route: 065
     Dates: start: 20190412, end: 201910
  13. VINCRISTINE [Suspect]
     Active Substance: VINCRISTINE
     Dosage: PART OF CVP
     Route: 065
     Dates: start: 20191223
  14. IFOSFAMIDE. [Suspect]
     Active Substance: IFOSFAMIDE
     Dosage: PART OF R-ICE X 6 CYCLES
     Route: 065
  15. DOXORUBICIN [Suspect]
     Active Substance: DOXORUBICIN
     Indication: DIFFUSE LARGE B-CELL LYMPHOMA
     Dosage: PART OF R-CHOP1
     Route: 065
     Dates: start: 20180612, end: 20180620
  16. VINCRISTINE [Suspect]
     Active Substance: VINCRISTINE
     Indication: DIFFUSE LARGE B-CELL LYMPHOMA
     Dosage: PART OF R-CHOP1
     Route: 065
     Dates: start: 20180612, end: 20180620
  17. PREDNISOLONE. [Suspect]
     Active Substance: PREDNISOLONE
     Dosage: PART OF CVP
     Route: 065
     Dates: start: 20191223

REACTIONS (5)
  - Otitis externa [Unknown]
  - Perichondritis [Unknown]
  - Drug hypersensitivity [Unknown]
  - Diffuse large B-cell lymphoma refractory [Unknown]
  - Sepsis [Unknown]
